FAERS Safety Report 4520952-9 (Version None)
Quarter: 2004Q4

REPORT INFORMATION
  Report Type: 
  Country: None (occurrence: None)
  Receive Date: 20041206
  Receipt Date: 20041129
  Transmission Date: 20050328
  Serious: Yes (Other)
  Sender: FDA-Public Use
  Company Number: 2004-06-2235

PATIENT
  Age: 75 Year
  Sex: Male
  Weight: 70 kg

DRUGS (11)
  1. REBETOL [Suspect]
     Indication: HEPATITIS C
     Dosage: 800 MG ORAL
     Route: 048
     Dates: start: 20040607, end: 20040628
  2. INTRON A [Suspect]
     Indication: HEPATITIS C
     Dosage: SEE IMAGE
     Route: 030
     Dates: start: 20040607, end: 20040619
  3. INTRON A [Suspect]
     Indication: HEPATITIS C
     Dosage: SEE IMAGE
     Route: 030
     Dates: start: 20040621, end: 20040625
  4. AMLODIPINE BESYLATE [Concomitant]
  5. FAMOTIDINE [Concomitant]
  6. URSO [Concomitant]
  7. GLYCYCRON [Concomitant]
  8. MAGNESIUM OXIDE [Concomitant]
  9. RIZE [Concomitant]
  10. ALPRAZOLAM [Concomitant]
  11. ZOLPIDEM TARTRATE [Concomitant]

REACTIONS (10)
  - ANOREXIA [None]
  - ARTERIOSCLEROSIS [None]
  - CEREBELLAR ATROPHY [None]
  - CEREBRAL ISCHAEMIA [None]
  - DEMENTIA [None]
  - DISORIENTATION [None]
  - ENCEPHALOPATHY [None]
  - HEADACHE [None]
  - MEMORY IMPAIRMENT [None]
  - PARAESTHESIA [None]
